FAERS Safety Report 20394044 (Version 1)
Quarter: 2022Q1

REPORT INFORMATION
  Report Type: Spontaneous
  Country: US (occurrence: US)
  Receive Date: 20220129
  Receipt Date: 20220129
  Transmission Date: 20220423
  Serious: No
  Sender: FDA-Public Use
  Company Number: US-HETERO-HET2022US00185

PATIENT

DRUGS (1)
  1. RITONAVIR [Suspect]
     Active Substance: RITONAVIR
     Indication: Product used for unknown indication
     Dosage: UNK, BID PILLS IN THE MORNING FROM THE MORNING SIDE AND 1 PILL FROM THE EVENING SIDE
     Route: 048

REACTIONS (1)
  - Incorrect dose administered [Unknown]
